FAERS Safety Report 19906982 (Version 1)
Quarter: 2021Q3

REPORT INFORMATION
  Report Type: Spontaneous
  Country: US (occurrence: US)
  Receive Date: 20210930
  Receipt Date: 20210930
  Transmission Date: 20211014
  Serious: No
  Sender: FDA-Public Use
  Company Number: US-009507513-2109USA000520

PATIENT
  Sex: Female
  Weight: 63.9 kg

DRUGS (3)
  1. TREPROSTINIL SODIUM [Concomitant]
     Active Substance: TREPROSTINIL SODIUM
     Indication: PULMONARY ARTERIAL HYPERTENSION
     Dosage: UNK. CONCENTRATION OF 10 MG/ML
     Route: 058
     Dates: start: 20190227
  2. OPSUMIT [Concomitant]
     Active Substance: MACITENTAN
  3. JANUVIA [Suspect]
     Active Substance: SITAGLIPTIN PHOSPHATE
     Indication: DIABETES MELLITUS
     Dosage: 50 MILLIGRAM, QD
     Route: 048

REACTIONS (1)
  - Balance disorder [Unknown]
